FAERS Safety Report 9648534 (Version 2)
Quarter: 2014Q1

REPORT INFORMATION
  Report Type: Report from Study
  Country: JP (occurrence: JP)
  Receive Date: 20131028
  Receipt Date: 20140115
  Transmission Date: 20141002
  Serious: Yes (Other)
  Sender: FDA-Public Use
  Company Number: JP-SHIRE-ALL1-2013-07311

PATIENT
  Age: 88 Year
  Sex: Male

DRUGS (12)
  1. 405 (LANTHANUM CARBONATE) [Suspect]
     Indication: HYPERPHOSPHATAEMIA
     Dosage: 1500 MG, OTHER (DAILY DOSE)
     Route: 048
     Dates: start: 20130610, end: 20130925
  2. 405 (LANTHANUM CARBONATE) [Suspect]
     Indication: HYPERPHOSPHATAEMIA
     Dosage: 750 MG, OTHER (DAILY DOSE)
     Route: 048
     Dates: start: 20090729, end: 20130609
  3. PRECIPITATED CALCIUM CARBONATE [Concomitant]
     Indication: HYPERPHOSPHATAEMIA
     Dosage: 3000 MG, UNKNOWN
     Route: 048
     Dates: start: 20090729
  4. OXAROL [Concomitant]
     Indication: HYPERPHOSPHATAEMIA
     Dosage: 5 ?G, 1X/WEEK
     Route: 042
     Dates: start: 20090729, end: 20090915
  5. OXAROL [Concomitant]
     Dosage: 2.5 ?G, 1X/WEEK
     Route: 042
     Dates: start: 20090916, end: 20091110
  6. OXAROL [Concomitant]
     Dosage: 5 ?G, 1X/WEEK
     Route: 042
     Dates: start: 20091111
  7. MUCOSTA [Concomitant]
     Indication: PRODUCT USED FOR UNKNOWN INDICATION
     Dosage: 300 MG, UNKNOWN
     Route: 048
  8. JUVELA                             /00110502/ [Concomitant]
     Indication: PRODUCT USED FOR UNKNOWN INDICATION
     Dosage: 300 MG, UNKNOWN
     Route: 048
  9. AMOBAN [Concomitant]
     Indication: PRODUCT USED FOR UNKNOWN INDICATION
     Dosage: 7.5 MG, UNKNOWN
     Route: 048
  10. ARGAMATE [Concomitant]
     Indication: PRODUCT USED FOR UNKNOWN INDICATION
     Dosage: 50 G, UNKNOWN
     Route: 048
  11. LASIX                              /00032601/ [Concomitant]
     Indication: PRODUCT USED FOR UNKNOWN INDICATION
     Dosage: 20 MG, UNKNOWN
     Route: 048
  12. RISUMIC [Concomitant]
     Indication: PRODUCT USED FOR UNKNOWN INDICATION
     Dosage: 10 MG, UNKNOWN
     Route: 048

REACTIONS (1)
  - Lymphoma [Not Recovered/Not Resolved]
